FAERS Safety Report 6026337-0 (Version None)
Quarter: 2008Q4

REPORT INFORMATION
  Report Type: 
  Country: None (occurrence: None)
  Receive Date: 20081222
  Receipt Date: 20081010
  Transmission Date: 20090506
  Serious: No
  Sender: FDA-Public Use
  Company Number: US-WYE-H06370508

PATIENT
  Age: 59 Year
  Sex: Female
  Weight: 45.4 kg

DRUGS (10)
  1. PRISTIQ [Suspect]
     Indication: DEPRESSION
     Dosage: 50 MG 1X PER 1 DAY, ORAL
     Route: 048
     Dates: start: 20081008, end: 20080101
  2. CYMBALTA [Concomitant]
  3. AMITRIPTYLINE HYDROCHLORIDE [Concomitant]
  4. MIRAPEX [Concomitant]
  5. ARTHROTEC [Concomitant]
  6. PROPRANOLOL [Concomitant]
  7. LEVOTHYROXINE SODIUM [Concomitant]
  8. PREVACID [Concomitant]
  9. CLONIDINE [Concomitant]
  10. IMITREX (SUMATRIPTAN SUCCINATE) [Concomitant]

REACTIONS (3)
  - ASTHENIA [None]
  - MIGRAINE [None]
  - PARAESTHESIA [None]
